FAERS Safety Report 4299192-7 (Version None)
Quarter: 2004Q1

REPORT INFORMATION
  Report Type: 
  Country: None (occurrence: None)
  Receive Date: 20040217
  Receipt Date: 20040217
  Transmission Date: 20041129
  Serious: No
  Sender: FDA-Public Use
  Company Number: None

PATIENT
  Sex: Female
  Weight: 83.0083 kg

DRUGS (1)
  1. DEPO-PROVERA [Suspect]
     Dosage: 3/31/03 SUBDERMAL, 6/30/03 SUBDERMAL
     Route: 059

REACTIONS (1)
  - UTERINE LEIOMYOMA [None]
